FAERS Safety Report 14724069 (Version 3)
Quarter: 2021Q4

REPORT INFORMATION
  Report Type: Report from Study
  Country: CA (occurrence: CA)
  Receive Date: 20180405
  Receipt Date: 20211004
  Transmission Date: 20220303
  Serious: Yes (Hospitalization)
  Sender: FDA-Public Use
  Company Number: CA-TEVA-2018-CA-877476

PATIENT
  Age: 97 Year
  Sex: Female

DRUGS (2)
  1. RAMIPRIL [Suspect]
     Active Substance: RAMIPRIL
     Dosage: RAMIPRIL DAILY
     Route: 065
  2. FUROSEMIDE [Suspect]
     Active Substance: FUROSEMIDE
     Dosage: FUROSEMIDE DAILY
     Route: 065

REACTIONS (3)
  - Hypotension [Unknown]
  - Fall [Unknown]
  - Spinal compression fracture [Unknown]
